FAERS Safety Report 7169792-5 (Version None)
Quarter: 2010Q4

REPORT INFORMATION
  Report Type: 
  Country: None (occurrence: None)
  Receive Date: 20101217
  Receipt Date: 20100924
  Transmission Date: 20110411
  Serious: No
  Sender: FDA-Public Use
  Company Number: A0883216A

PATIENT
  Age: 77 Year
  Sex: Female

DRUGS (2)
  1. SORIATANE [Suspect]
     Indication: PSORIASIS
     Dosage: 10MG PER DAY
     Route: 048
  2. UNKNOWN MEDICATION [Concomitant]
     Route: 061

REACTIONS (6)
  - LIP SWELLING [None]
  - NAIL DISORDER [None]
  - OEDEMA PERIPHERAL [None]
  - PAIN [None]
  - PRURITUS GENERALISED [None]
  - SKIN EXFOLIATION [None]
